FAERS Safety Report 20698687 (Version 1)
Quarter: 2022Q2

REPORT INFORMATION
  Report Type: Spontaneous
  Country: HU (occurrence: HU)
  Receive Date: 20220412
  Receipt Date: 20220412
  Transmission Date: 20220721
  Serious: Yes (Other)
  Sender: FDA-Public Use
  Company Number: None

PATIENT
  Age: 48 Year
  Sex: Female

DRUGS (3)
  1. CLONAZEPAM [Suspect]
     Active Substance: CLONAZEPAM
     Dosage: 3 DF, DAILY
     Route: 048
  2. OLANZAPINE [Suspect]
     Active Substance: OLANZAPINE
     Dosage: 5 MG, TID (EVERY 8 HOUR)
     Route: 048
  3. PREGABALIN [Suspect]
     Active Substance: PREGABALIN
     Indication: Epilepsy
     Dosage: 75 MG, DAILY (IN THE EVENING)
     Route: 048
     Dates: start: 20211227, end: 20220117

REACTIONS (37)
  - Muscle twitching [Unknown]
  - Diplopia [Unknown]
  - Sensation of foreign body [Unknown]
  - Visual impairment [Unknown]
  - Sensitive skin [Unknown]
  - Nausea [Unknown]
  - Photopsia [Unknown]
  - Vertigo [Unknown]
  - Myalgia [Unknown]
  - Dry mouth [Unknown]
  - Fall [Unknown]
  - Presyncope [Unknown]
  - Syncope [Unknown]
  - Fatigue [Unknown]
  - Balance disorder [Unknown]
  - Hunger [Unknown]
  - Insomnia [Unknown]
  - Vomiting [Unknown]
  - Flatulence [Unknown]
  - Diarrhoea [Unknown]
  - Lacrimation increased [Unknown]
  - Tremor [Unknown]
  - Palpitations [Unknown]
  - Muscle spasms [Unknown]
  - Gait inability [Unknown]
  - Food craving [Unknown]
  - Oversensing [Unknown]
  - Abdominal pain upper [Unknown]
  - Dry eye [Unknown]
  - Tachycardia [Unknown]
  - Hypoaesthesia [Unknown]
  - Burning sensation [Unknown]
  - Hyporeflexia [Unknown]
  - Eye irritation [Unknown]
  - Constipation [Unknown]
  - Somnolence [Unknown]
  - Eye pain [Unknown]

NARRATIVE: CASE EVENT DATE: 20211227
